FAERS Safety Report 4382937-5 (Version None)
Quarter: 2004Q2

REPORT INFORMATION
  Report Type: 
  Country: None (occurrence: None)
  Receive Date: 20040622
  Receipt Date: 20040611
  Transmission Date: 20050107
  Serious: Yes (Hospitalization)
  Sender: FDA-Public Use
  Company Number: LV-MERCK-0406HUN00012

PATIENT
  Age: 31 Year
  Sex: Female
  Weight: 54 kg

DRUGS (4)
  1. FLUCONAZOLE [Concomitant]
     Indication: CRYPTOCOCCOSIS
     Route: 048
     Dates: start: 20030101, end: 20030101
  2. CRIXIVAN [Suspect]
     Indication: ACQUIRED IMMUNODEFICIENCY SYNDROME
     Route: 048
     Dates: start: 20040317, end: 20040517
  3. LAMIVUDINE AND ZIDOVUDINE [Suspect]
     Indication: ACQUIRED IMMUNODEFICIENCY SYNDROME
     Route: 048
     Dates: start: 20040317
  4. RITONAVIR [Suspect]
     Indication: ACQUIRED IMMUNODEFICIENCY SYNDROME
     Route: 048
     Dates: start: 20040317, end: 20040517

REACTIONS (5)
  - DERMATITIS [None]
  - DRY SKIN [None]
  - HAEMORRHAGE [None]
  - OEDEMA PERIPHERAL [None]
  - PURPURA [None]
